FAERS Safety Report 25604789 (Version 1)
Quarter: 2025Q3

REPORT INFORMATION
  Report Type: Spontaneous
  Country: US (occurrence: US)
  Receive Date: 20250725
  Receipt Date: 20250725
  Transmission Date: 20251020
  Serious: Yes (Congenital Anomaly)
  Sender: SPECGX
  Company Number: US-SPECGX-T202501260

PATIENT

DRUGS (1)
  1. METHADONE [Suspect]
     Active Substance: METHADONE HYDROCHLORIDE
     Indication: Product used for unknown indication
     Route: 064

REACTIONS (2)
  - Limb reduction defect [Unknown]
  - Foetal exposure during pregnancy [Unknown]
